FAERS Safety Report 23652698 (Version 1)
Quarter: 2024Q1

REPORT INFORMATION
  Report Type: Spontaneous
  Country: GB (occurrence: GB)
  Receive Date: 20240320
  Receipt Date: 20240320
  Transmission Date: 20240410
  Serious: Yes (Other)
  Sender: FDA-Public Use
  Company Number: None

PATIENT
  Age: 76 Year
  Sex: Female

DRUGS (9)
  1. DOXYCYCLINE [Suspect]
     Active Substance: DOXYCYCLINE
     Dosage: TWO NOW THEN
     Route: 065
     Dates: start: 20240229
  2. MIRTAZAPINE [Concomitant]
     Active Substance: MIRTAZAPINE
     Route: 065
     Dates: start: 20180525
  3. AMOXICILLIN [Concomitant]
     Active Substance: AMOXICILLIN
     Dosage: TIME INTERVAL: 0.33333333 DAYS
     Route: 065
     Dates: start: 20240304, end: 20240311
  4. ALBUTEROL [Concomitant]
     Active Substance: ALBUTEROL
     Dosage: TIME INTERVAL: AS NECESSARY
     Route: 065
     Dates: start: 20240304
  5. BECLOMETHASONE DIPROPIONATE [Concomitant]
     Active Substance: BECLOMETHASONE DIPROPIONATE
     Route: 065
     Dates: start: 20240314
  6. HYDROXOCOBALAMIN [Concomitant]
     Active Substance: HYDROXOCOBALAMIN
     Route: 065
     Dates: start: 20231229
  7. GABAPENTIN [Concomitant]
     Active Substance: GABAPENTIN
     Dosage: TIME INTERVAL: 0.33333333 DAYS
     Route: 065
     Dates: start: 20180525
  8. LEVOTHYROXINE [Concomitant]
     Active Substance: LEVOTHYROXINE\LEVOTHYROXINE SODIUM
     Dosage: EACH MORNING
     Route: 065
     Dates: start: 20180525
  9. UNSPECIFIED INGREDIENT [Concomitant]
     Active Substance: UNSPECIFIED INGREDIENT
     Dosage: USE AS DIRECTED
     Route: 065
     Dates: start: 20240304

REACTIONS (1)
  - Jaundice [Recovered/Resolved]
